FAERS Safety Report 4565518-X (Version None)
Quarter: 2005Q1

REPORT INFORMATION
  Report Type: 
  Country: None (occurrence: None)
  Receive Date: 20050131
  Receipt Date: 20050119
  Transmission Date: 20050727
  Serious: Yes (Hospitalization)
  Sender: FDA-Public Use
  Company Number: FR-GLAXOSMITHKLINE-B0364856A

PATIENT
  Age: 31 Year
  Sex: Male

DRUGS (5)
  1. DEROXAT [Suspect]
     Indication: ILL-DEFINED DISORDER
     Dosage: 10MG PER DAY
     Route: 048
  2. NEORAL [Suspect]
     Route: 048
  3. GLEEVEC [Suspect]
     Dosage: 400MG PER DAY
     Route: 048
     Dates: start: 20030401
  4. CELLCEPT [Suspect]
     Dosage: 1G TWICE PER DAY
     Route: 048
  5. TAHOR [Suspect]
     Dosage: 10MG PER DAY
     Route: 048

REACTIONS (3)
  - BLOOD CREATININE INCREASED [None]
  - DRUG LEVEL INCREASED [None]
  - HYPERURICAEMIA [None]
